FAERS Safety Report 21177774 (Version 2)
Quarter: 2022Q4

REPORT INFORMATION
  Report Type: Spontaneous
  Country: US (occurrence: US)
  Receive Date: 20220805
  Receipt Date: 20221215
  Transmission Date: 20230113
  Serious: Yes (Hospitalization, Other)
  Sender: FDA-Public Use
  Company Number: US-PFIZER INC-202201035607

PATIENT
  Age: 47 Year
  Sex: Male

DRUGS (1)
  1. BOSULIF [Suspect]
     Active Substance: BOSUTINIB MONOHYDRATE
     Dosage: 300 MG, DAILY (TAKE 3 TABLETS DAILY WITH FOOD)
     Route: 048
     Dates: start: 20220729

REACTIONS (3)
  - Nephrostomy [Unknown]
  - Pyrexia [Unknown]
  - Nausea [Unknown]
